FAERS Safety Report 6477885-0 (Version None)
Quarter: 2009Q4

REPORT INFORMATION
  Report Type: 
  Country: None (occurrence: None)
  Receive Date: 20091207
  Receipt Date: 20091124
  Transmission Date: 20100525
  Serious: Yes (Hospitalization)
  Sender: FDA-Public Use
  Company Number: US-BAYER-200940987GPV

PATIENT
  Age: 53 Year
  Sex: Female

DRUGS (4)
  1. NAPROXEN [Suspect]
     Indication: ARTHRALGIA
     Route: 065
     Dates: start: 20030101
  2. AMLODIPINE [Suspect]
     Route: 065
     Dates: start: 20090323
  3. ALISKIREN [Suspect]
     Indication: SYSTOLIC HYPERTENSION
     Route: 065
     Dates: start: 20090323
  4. HYDROCHLOROTHIAZIDE [Suspect]
     Indication: SYSTOLIC HYPERTENSION
     Route: 065
     Dates: start: 20090323

REACTIONS (1)
  - CHEST PAIN [None]
